FAERS Safety Report 14887872 (Version 1)
Quarter: 2018Q2

REPORT INFORMATION
  Report Type: Report from Study
  Country: US (occurrence: US)
  Receive Date: 20180513
  Receipt Date: 20180513
  Transmission Date: 20180711
  Serious: Yes (Other)
  Sender: FDA-Public Use
  Company Number: US-ROCHE-2120428

PATIENT
  Age: 64 Year
  Sex: Female
  Weight: 62.2 kg

DRUGS (2)
  1. STEREOTACTIC RADIATION THERAPY [Suspect]
     Active Substance: RADIATION THERAPY
     Indication: NON-SMALL CELL LUNG CANCER STAGE IV
     Dosage: DOSE: 50 GY FRACTION?MOST RECENT DOSE ON 09/APR/2018
     Route: 065
     Dates: start: 20180329
  2. ATEZOLIZUMAB. [Suspect]
     Active Substance: ATEZOLIZUMAB
     Indication: NON-SMALL CELL LUNG CANCER STAGE IV
     Dosage: CYCLE 1?ON 19/APR/2018, RECEIVED CYCLE 4
     Route: 042
     Dates: start: 20180216

REACTIONS (1)
  - Pulmonary embolism [Unknown]

NARRATIVE: CASE EVENT DATE: 20180427
